FAERS Safety Report 6023008-1 (Version None)
Quarter: 2008Q4

REPORT INFORMATION
  Report Type: 
  Country: None (occurrence: None)
  Receive Date: 20081230
  Receipt Date: 20080212
  Transmission Date: 20090506
  Serious: No
  Sender: FDA-Public Use
  Company Number: US-ABBOTT-08P-163-0438056-00

PATIENT
  Sex: Male
  Weight: 27.694 kg

DRUGS (4)
  1. OMNICEF [Suspect]
     Indication: BRONCHITIS
     Route: 048
     Dates: start: 20080208
  2. OMNICEF [Suspect]
     Indication: SINUSITIS
     Dosage: 1.5 TEASPOONS EXTRA MEDICAITON, IN ADDITION TO AM AND PM DOSE
     Dates: start: 20080211, end: 20080211
  3. OMNICEF [Suspect]
  4. CETIRIZINE HYDROCHLORIDE [Concomitant]
     Indication: SEASONAL ALLERGY
     Route: 048

REACTIONS (2)
  - INCORRECT DOSE ADMINISTERED [None]
  - POLLAKIURIA [None]
